FAERS Safety Report 4541656-2 (Version None)
Quarter: 2004Q4

REPORT INFORMATION
  Report Type: 
  Country: None (occurrence: None)
  Receive Date: 20041227
  Receipt Date: 20041213
  Transmission Date: 20050328
  Serious: Yes (Death)
  Sender: FDA-Public Use
  Company Number: 2004CG02464

PATIENT
  Age: 73 Year
  Sex: Male

DRUGS (4)
  1. CRESTOR [Suspect]
     Indication: HYPERCHOLESTEROLAEMIA
     Dosage: 10 MG DAILY PO
     Route: 048
     Dates: start: 20040909
  2. SOTALOL HCL [Suspect]
  3. COAPROVEL [Concomitant]
  4. PREVISCAN [Concomitant]

REACTIONS (1)
  - SUDDEN DEATH [None]
